FAERS Safety Report 8678285 (Version 2)
Quarter: 2012Q4

REPORT INFORMATION
  Report Type: 
  Country: US (occurrence: US)
  Receive Date: 20120723
  Receipt Date: 20120830
  Transmission Date: 20130627
  Serious: Yes (Hospitalization)
  Sender: FDA-Public Use
  Company Number: US-ACTELION-A-NJ2012-68757

PATIENT
  Age: 33 Year
  Sex: Female

DRUGS (2)
  1. VELETRI [Suspect]
     Indication: PULMONARY ARTERIAL HYPERTENSION
     Dosage: 29 ng/kg, per min
     Route: 041
     Dates: start: 20101006
  2. COUMADIN [Concomitant]

REACTIONS (4)
  - Sinusitis [Unknown]
  - Device related infection [Unknown]
  - Catheter placement [Unknown]
  - Urinary tract infection [Unknown]
